FAERS Safety Report 10510058 (Version 2)
Quarter: 2021Q3

REPORT INFORMATION
  Report Type: Spontaneous
  Country: DE (occurrence: DE)
  Receive Date: 20141010
  Receipt Date: 20210814
  Transmission Date: 20211014
  Serious: Yes (Other)
  Sender: FDA-Public Use
  Company Number: DE-AUROBINDO-AUR-APL-2014-10516

PATIENT
  Age: 33 Year
  Sex: Female

DRUGS (3)
  1. RISPERIDONE 4MG [Suspect]
     Active Substance: RISPERIDONE
     Indication: DEPRESSION
     Dosage: 4 MILLIGRAM, ONCE A DAY
     Route: 048
     Dates: start: 20121123, end: 20130504
  2. INSULIN [Concomitant]
     Active Substance: INSULIN NOS
     Indication: GESTATIONAL DIABETES
     Dosage: 40 INTERNATIONAL UNIT, DAILY
     Route: 058
     Dates: start: 20130615
  3. VENLAFAXINE [Suspect]
     Active Substance: VENLAFAXINE HYDROCHLORIDE
     Indication: DEPRESSION
     Dosage: 250 MG REDUCED TO 225 MG DAILY
     Route: 048
     Dates: start: 20121123, end: 20130801

REACTIONS (2)
  - Gestational diabetes [Recovered/Resolved]
  - Maternal exposure during pregnancy [Unknown]

NARRATIVE: CASE EVENT DATE: 2013
